FAERS Safety Report 5852239-6 (Version None)
Quarter: 2008Q3

REPORT INFORMATION
  Report Type: 
  Country: None (occurrence: None)
  Receive Date: 20080820
  Receipt Date: 20080820
  Transmission Date: 20090109
  Serious: No
  Sender: FDA-Public Use
  Company Number: None

PATIENT
  Sex: Female

DRUGS (1)
  1. OXYTOCIN [Suspect]
     Dosage: INJECTABLE

REACTIONS (19)
  - ABDOMINAL PAIN [None]
  - ABNORMAL LABOUR [None]
  - CONTUSION [None]
  - DRUG ADMINISTRATION ERROR [None]
  - DRUG EXPOSURE DURING PREGNANCY [None]
  - DYSPAREUNIA [None]
  - FEELING ABNORMAL [None]
  - GAIT DISTURBANCE [None]
  - MEDICATION ERROR [None]
  - OCULAR HYPERAEMIA [None]
  - PAIN [None]
  - PERINEAL LACERATION [None]
  - QUALITY OF LIFE DECREASED [None]
  - RASH MACULO-PAPULAR [None]
  - STRESS [None]
  - UTERINE SPASM [None]
  - VACUUM EXTRACTOR DELIVERY [None]
  - VAGINAL PAIN [None]
  - WRONG DRUG ADMINISTERED [None]
